FAERS Safety Report 19857624 (Version 2)
Quarter: 2021Q4

REPORT INFORMATION
  Report Type: Spontaneous
  Country: CN (occurrence: CN)
  Receive Date: 20210920
  Receipt Date: 20211001
  Transmission Date: 20220303
  Serious: Yes (Other)
  Sender: FDA-Public Use
  Company Number: CN-BAYER-2021-213651

PATIENT
  Age: 71 Year
  Sex: Male

DRUGS (2)
  1. STIVARGA [Suspect]
     Active Substance: REGORAFENIB
     Indication: Colorectal cancer stage IV
     Dosage: 120 MG, QD
     Route: 048
     Dates: start: 20201110
  2. SINTILIMAB [Concomitant]
     Active Substance: SINTILIMAB
     Indication: Immunochemotherapy
     Dosage: UNK
     Dates: start: 20210113

REACTIONS (3)
  - Colorectal cancer [None]
  - Palmar-plantar erythrodysaesthesia syndrome [Not Recovered/Not Resolved]
  - Off label use [None]

NARRATIVE: CASE EVENT DATE: 20201101
